FAERS Safety Report 9577638 (Version 1)
Quarter: 2013Q4

REPORT INFORMATION
  Report Type: Spontaneous
  Country: US (occurrence: US)
  Receive Date: 20131001
  Receipt Date: 20131001
  Transmission Date: 20140711
  Serious: No
  Sender: FDA-Public Use
  Company Number: US-AMGEN-USASP2013009293

PATIENT
  Sex: Female
  Weight: 61.22 kg

DRUGS (4)
  1. ENBREL [Suspect]
     Indication: RHEUMATOID ARTHRITIS
     Dosage: 50 MG, QWK
     Route: 058
  2. ENALAPRIL [Concomitant]
     Dosage: 10 MG, UNK
  3. LIBRAX                             /00033301/ [Concomitant]
     Dosage: UNK MG, UNK, 5-2.5
  4. METHOTREXATE [Concomitant]
     Dosage: 1 GM/40 ML

REACTIONS (1)
  - Arthralgia [Unknown]
